FAERS Safety Report 23656062 (Version 1)
Quarter: 2024Q1

REPORT INFORMATION
  Report Type: Spontaneous
  Country: GB (occurrence: GB)
  Receive Date: 20240321
  Receipt Date: 20240321
  Transmission Date: 20240410
  Serious: Yes (Life-Threatening, Hospitalization)
  Sender: FDA-Public Use
  Company Number: None

PATIENT
  Age: 30 Year
  Sex: Female

DRUGS (8)
  1. CLOBAZAM [Suspect]
     Active Substance: CLOBAZAM
     Indication: Product used for unknown indication
     Route: 048
     Dates: start: 20240113
  2. LACOSAMIDE [Suspect]
     Active Substance: LACOSAMIDE
     Indication: Product used for unknown indication
     Route: 048
     Dates: start: 20240307, end: 20240307
  3. CITALOPRAM [Suspect]
     Active Substance: CITALOPRAM\CITALOPRAM HYDROBROMIDE
     Indication: Product used for unknown indication
     Route: 048
     Dates: start: 20240307
  4. CENOBAMATE [Suspect]
     Active Substance: CENOBAMATE
     Indication: Product used for unknown indication
     Dosage: NIGHT
     Route: 048
     Dates: start: 20230406, end: 20240307
  5. ALCOHOL [Suspect]
     Active Substance: ALCOHOL
     Indication: Product used for unknown indication
  6. COCAINE [Suspect]
     Active Substance: COCAINE
     Indication: Product used for unknown indication
     Dates: start: 20240307
  7. OMEPRAZOLE [Concomitant]
     Active Substance: OMEPRAZOLE
     Route: 048
     Dates: start: 20181224, end: 20240307
  8. THIAMINE [Concomitant]
     Active Substance: THIAMINE
     Route: 048
     Dates: start: 20211110

REACTIONS (3)
  - Suicide attempt [Recovered/Resolved]
  - Pneumonia aspiration [Unknown]
  - Pancreatitis [Unknown]

NARRATIVE: CASE EVENT DATE: 20240303
